APPROVED DRUG PRODUCT: RUFEN
Active Ingredient: IBUPROFEN
Strength: 600MG
Dosage Form/Route: TABLET;ORAL
Application: N018197 | Product #002
Applicant: BASF CORP
Approved: Mar 5, 1984 | RLD: No | RS: No | Type: DISCN